FAERS Safety Report 6672864-2 (Version None)
Quarter: 2010Q2

REPORT INFORMATION
  Report Type: 
  Country: None (occurrence: None)
  Receive Date: 20100408
  Receipt Date: 20100329
  Transmission Date: 20101027
  Serious: Yes (Other)
  Sender: FDA-Public Use
  Company Number: PHEH2010US03370

PATIENT
  Sex: Male

DRUGS (9)
  1. DIOVAN [Suspect]
     Indication: HYPERTENSION
     Dosage: 40MG, UNK
     Dates: start: 20080101
  2. DIOVAN [Suspect]
     Indication: AMYLOIDOSIS
     Dosage: 80 MG, QD
     Dates: start: 20100301
  3. LEVOTHROID [Concomitant]
  4. AMBRIL [Concomitant]
  5. NAPROXEN [Concomitant]
  6. ASPIRIN [Concomitant]
  7. FLOMAX [Concomitant]
  8. LIBRIUM [Concomitant]
  9. LISINOPRIL [Concomitant]

REACTIONS (8)
  - DIZZINESS [None]
  - DYSPEPSIA [None]
  - GASTROINTESTINAL DISORDER [None]
  - MALAISE [None]
  - NAUSEA [None]
  - NERVOUSNESS [None]
  - SLEEP DISORDER [None]
  - STENT PLACEMENT [None]
